FAERS Safety Report 11481347 (Version 5)
Quarter: 2015Q4

REPORT INFORMATION
  Report Type: Spontaneous
  Country: US (occurrence: US)
  Receive Date: 20150909
  Receipt Date: 20151021
  Transmission Date: 20160304
  Serious: Yes (Death, Hospitalization)
  Sender: FDA-Public Use
  Company Number: US-ACTELION-A-US2015-120639

PATIENT
  Age: 47 Year
  Sex: Female

DRUGS (1)
  1. VELETRI [Suspect]
     Active Substance: EPOPROSTENOL
     Indication: PULMONARY HYPERTENSION
     Dosage: 25 NG/KG, PER MIN
     Route: 042
     Dates: start: 20140127

REACTIONS (13)
  - Pericardial effusion [Recovering/Resolving]
  - Fluid retention [Unknown]
  - Nausea [Unknown]
  - Death [Fatal]
  - Fluid overload [Unknown]
  - Palpitations [Recovering/Resolving]
  - Flushing [Unknown]
  - Pulmonary arterial hypertension [Unknown]
  - Drug administration error [Unknown]
  - Decreased appetite [Unknown]
  - Dyspnoea [Unknown]
  - Right ventricular failure [Unknown]
  - Dyspnoea exertional [Unknown]
